FAERS Safety Report 10485874 (Version 2)
Quarter: 2014Q4

REPORT INFORMATION
  Report Type: Spontaneous
  Country: SG (occurrence: SG)
  Receive Date: 20141001
  Receipt Date: 20141001
  Transmission Date: 20150528
  Serious: Yes (Other)
  Sender: FDA-Public Use
  Company Number: SG-CIPLA LTD.-2014SG01465

PATIENT

DRUGS (3)
  1. ALENDRONATE [Suspect]
     Active Substance: ALENDRONATE SODIUM
     Indication: FEMORAL NECK FRACTURE
     Dosage: 70 MG,WEEKLY
  2. VITAMIN D SUPPLEMENTS [Concomitant]
     Dosage: UNK
  3. CALCIUM SUPPLEMENTS [Concomitant]
     Active Substance: CALCIUM
     Dosage: UNK

REACTIONS (1)
  - Ulna fracture [Unknown]
